FAERS Safety Report 9146219 (Version 1)
Quarter: 2013Q1

REPORT INFORMATION
  Report Type: Spontaneous
  Country: BR (occurrence: BR)
  Receive Date: 20130307
  Receipt Date: 20130307
  Transmission Date: 20140127
  Serious: Yes (Other)
  Sender: FDA-Public Use
  Company Number: BR-PFIZER INC-2013073511

PATIENT
  Age: 37 Year
  Sex: Male

DRUGS (5)
  1. DOXORUBICIN HCL [Suspect]
  2. CYCLOPHOSPHAMIDE [Suspect]
  3. RITUXIMAB [Suspect]
  4. VINCRISTINE SULFATE [Concomitant]
  5. PREDNISONE [Concomitant]

REACTIONS (1)
  - Organising pneumonia [Unknown]
